FAERS Safety Report 4791469-1 (Version None)
Quarter: 2005Q4

REPORT INFORMATION
  Report Type: 
  Country: None (occurrence: None)
  Receive Date: 20051007
  Receipt Date: 20040820
  Transmission Date: 20060501
  Serious: Yes (Other)
  Sender: FDA-Public Use
  Company Number: US-BRISTOL-MYERS SQUIBB COMPANY-12678272

PATIENT
  Age: 73 Year
  Sex: Female

DRUGS (4)
  1. AVAPRO [Suspect]
     Indication: HYPERTENSION
     Route: 048
     Dates: start: 20040101
  2. CLONIDINE [Concomitant]
  3. LEVOXYL [Concomitant]
  4. TIMOPTIC [Concomitant]

REACTIONS (2)
  - HEADACHE [None]
  - HYPERTENSION [None]
